FAERS Safety Report 7495969-5 (Version None)
Quarter: 2011Q2

REPORT INFORMATION
  Report Type: 
  Country: None (occurrence: None)
  Receive Date: 20110523
  Receipt Date: 20110518
  Transmission Date: 20111010
  Serious: Yes (Other)
  Sender: FDA-Public Use
  Company Number: BR-PFIZER INC-2011106497

PATIENT
  Age: 43 Year
  Sex: Female
  Weight: 90 kg

DRUGS (2)
  1. VECASTEN [Concomitant]
     Dosage: UNK
     Dates: start: 20110401
  2. FELDENE [Suspect]
     Dosage: 20 MG, 1X/DAY
     Route: 048
     Dates: start: 20110516

REACTIONS (5)
  - CONDITION AGGRAVATED [None]
  - UTERINE HAEMORRHAGE [None]
  - UTERINE POLYP [None]
  - OVARIAN CYST [None]
  - BLOOD PRESSURE INCREASED [None]
